FAERS Safety Report 4990216-8 (Version None)
Quarter: 2006Q2

REPORT INFORMATION
  Report Type: 
  Country: None (occurrence: None)
  Receive Date: 20060501
  Receipt Date: 20060501
  Transmission Date: 20061013
  Serious: Yes (Hospitalization)
  Sender: FDA-Public Use
  Company Number: None

PATIENT
  Age: 67 Year
  Sex: Male
  Weight: 67.9 kg

DRUGS (1)
  1. IRINOTECAN [Suspect]
     Indication: NON-SMALL CELL LUNG CANCER
     Dosage: 700 MG    Q 3 WEEKS   IV DRIP
     Route: 041
     Dates: start: 20060419, end: 20060419

REACTIONS (2)
  - BODY TEMPERATURE INCREASED [None]
  - NEUTROPHIL COUNT DECREASED [None]
